FAERS Safety Report 9549032 (Version 1)
Quarter: 2013Q3

REPORT INFORMATION
  Report Type: Spontaneous
  Country: US (occurrence: None)
  Receive Date: 20130923
  Receipt Date: 20130923
  Transmission Date: 20140515
  Serious: No
  Sender: FDA-Public Use
  Company Number: None

PATIENT
  Age: 49 Year
  Sex: Female
  Weight: 86.18 kg

DRUGS (1)
  1. TRANSDERM SCOP [Suspect]
     Indication: MOTION SICKNESS
     Dosage: 1 PATCH APPLIED AS MEDICATED PATCH TO SKIN?
     Route: 061

REACTIONS (7)
  - Nausea [None]
  - Headache [None]
  - Vertigo [None]
  - Dry mouth [None]
  - Hallucination [None]
  - Amnesia [None]
  - Withdrawal syndrome [None]
